FAERS Safety Report 9757276 (Version 2)
Quarter: 2013Q4

REPORT INFORMATION
  Report Type: Report from Study
  Country: CA (occurrence: CA)
  Receive Date: 20131213
  Receipt Date: 20131218
  Transmission Date: 20140711
  Serious: Yes (Other)
  Sender: FDA-Public Use
  Company Number: CA-ROCHE-1320210

PATIENT
  Sex: Female
  Weight: 43 kg

DRUGS (8)
  1. ACTEMRA [Suspect]
     Indication: RHEUMATOID ARTHRITIS
     Route: 042
     Dates: start: 20110222
  2. ACTEMRA [Suspect]
     Route: 042
  3. CELEBREX [Concomitant]
  4. PREDNISONE [Concomitant]
  5. TYLENOL EXTRA STRENGTH [Concomitant]
  6. TRAMACET [Concomitant]
     Indication: PAIN
  7. PREVACID [Concomitant]
  8. PLAQUENIL [Concomitant]

REACTIONS (1)
  - Weight decreased [Unknown]
